FAERS Safety Report 4290004-4 (Version None)
Quarter: 2004Q1

REPORT INFORMATION
  Report Type: 
  Country: None (occurrence: None)
  Receive Date: 20040206
  Receipt Date: 20040130
  Transmission Date: 20041129
  Serious: Yes (Hospitalization, Other)
  Sender: FDA-Public Use
  Company Number: 805#1#2004-00002

PATIENT
  Age: 87 Year
  Sex: Male

DRUGS (14)
  1. ALPROSTADIL [Suspect]
     Indication: DIABETIC FOOT
     Dosage: 1.120 MG (60MCG 2 IN 1 DAY(S)), INTRAVENOUS DRIP
     Route: 041
     Dates: start: 20031222, end: 20031231
  2. CEFMETAZOLE-SODIUM (CEFMETAZOLE SODIUM) [Concomitant]
  3. PANIPENEM/BETAMIPRON (BETAMIPRON, PANIPENEM) [Concomitant]
  4. ARBEKACIN-SULFATE (ARBEKACIN) [Concomitant]
  5. ETHYLICOSAPENTATE (ETHYL ICOSAPENTATE) [Concomitant]
  6. NIFEDIPINE [Concomitant]
  7. VALSARTAN (VALSARTAN) [Concomitant]
  8. TEPRENONE (TEPRENONE) [Concomitant]
  9. TRICHLORMETHIAZIDE [Concomitant]
  10. TOFISOPAM (TOFISOPAM) [Concomitant]
  11. ZOPICLONE (ZOPICLONE) [Concomitant]
  12. VOGLIBOSE (VOGLIBOSE) [Concomitant]
  13. NICORANDIL (NICORANDIL) [Concomitant]
  14. ISOSORBIDE DINITRATE [Concomitant]

REACTIONS (8)
  - FLUID RETENTION [None]
  - MALAISE [None]
  - MARKEDLY REDUCED DIETARY INTAKE [None]
  - OEDEMA [None]
  - OEDEMA PERIPHERAL [None]
  - OXYGEN SATURATION DECREASED [None]
  - PLEURAL EFFUSION [None]
  - URINE OUTPUT DECREASED [None]
